FAERS Safety Report 24176097 (Version 1)
Quarter: 2024Q3

REPORT INFORMATION
  Report Type: Spontaneous
  Country: CN (occurrence: CN)
  Receive Date: 20240806
  Receipt Date: 20240806
  Transmission Date: 20241017
  Serious: Yes (Other)
  Sender: Chengdu Suncadia Medicine
  Company Number: CN-Chengdu Suncadia Medicine Co., Ltd.-2160033

PATIENT
  Sex: Male

DRUGS (2)
  1. TACROLIMUS EXTENDED-RELEASE CAPSULES [Suspect]
     Active Substance: TACROLIMUS
     Indication: Immunosuppression
  2. ACYCLOVIR [Concomitant]
     Active Substance: ACYCLOVIR

REACTIONS (1)
  - Diffuse large B-cell lymphoma [Recovering/Resolving]
